FAERS Safety Report 8291232-3 (Version None)
Quarter: 2012Q2

REPORT INFORMATION
  Report Type: 
  Country: None (occurrence: None)
  Receive Date: 20120417
  Receipt Date: 20120411
  Transmission Date: 20120825
  Serious: Yes (Other)
  Sender: FDA-Public Use
  Company Number: PL-BRISTOL-MYERS SQUIBB COMPANY-16514150

PATIENT
  Age: 21 Year
  Sex: Male

DRUGS (2)
  1. OLANZAPINE [Suspect]
     Indication: SCHIZOPHRENIA
     Dosage: DOSE REDUCED TO 10MG
  2. ABILIFY [Suspect]
     Indication: SCHIZOPHRENIA
     Dosage: REDUCED TO 15MG, FINAL DOSE IS 22.5MG

REACTIONS (2)
  - AKATHISIA [None]
  - PSYCHOTIC DISORDER [None]
